FAERS Safety Report 5449926-0 (Version None)
Quarter: 2007Q3

REPORT INFORMATION
  Report Type: 
  Country: None (occurrence: None)
  Receive Date: 20070907
  Receipt Date: 20070907
  Transmission Date: 20080115
  Serious: Yes (Other)
  Sender: FDA-Public Use
  Company Number: None

PATIENT
  Age: 63 Year
  Sex: Female
  Weight: 97.977 kg

DRUGS (1)
  1. ATENOLOL [Suspect]
     Indication: ATRIAL FIBRILLATION
     Dosage: 25 MG DAILY PO
     Route: 048
     Dates: start: 20060620, end: 20070220

REACTIONS (2)
  - APHONIA [None]
  - PNEUMONIA [None]
